FAERS Safety Report 4415287-9 (Version None)
Quarter: 2004Q3

REPORT INFORMATION
  Report Type: 
  Country: None (occurrence: None)
  Receive Date: 20040804
  Receipt Date: 20040426
  Transmission Date: 20050211
  Serious: Yes (Death, Life-Threatening, Hospitalization)
  Sender: FDA-Public Use
  Company Number: PE-BRISTOL-MYERS SQUIBB COMPANY-12571386

PATIENT
  Age: 62 Year
  Sex: Female

DRUGS (5)
  1. PLACEBO [Suspect]
     Indication: RHEUMATOID ARTHRITIS
     Route: 042
     Dates: start: 20030604
  2. METHOTREXATE [Suspect]
     Dates: start: 19970704, end: 20040401
  3. PREDNISONE [Suspect]
     Dates: start: 20020513
  4. GOLD [Concomitant]
     Dates: start: 20000602, end: 20040401
  5. SULFASALAZINE [Concomitant]
     Dates: start: 19980828, end: 20040401

REACTIONS (5)
  - CARDIAC ARREST [None]
  - MULTI-ORGAN FAILURE [None]
  - PNEUMOCYSTIS CARINII PNEUMONIA [None]
  - RENAL FAILURE [None]
  - RESPIRATORY MONILIASIS [None]
